FAERS Safety Report 17870375 (Version 1)
Quarter: 2020Q2

REPORT INFORMATION
  Report Type: Report from Study
  Country: ES (occurrence: ES)
  Receive Date: 20200608
  Receipt Date: 20200608
  Transmission Date: 20200714
  Serious: Yes (Hospitalization, Other)
  Sender: FDA-Public Use
  Company Number: ES-ELI_LILLY_AND_COMPANY-ES202006000982

PATIENT
  Age: 86 Year
  Sex: Female

DRUGS (4)
  1. TERIPARATIDE [Suspect]
     Active Substance: TERIPARATIDE
     Indication: OSTEOPOROSIS
     Dosage: 20 UG, DAILY
     Route: 058
     Dates: start: 20190925, end: 202005
  2. RISPERIDONE. [Concomitant]
     Active Substance: RISPERIDONE
     Indication: FEELING OF RELAXATION
     Dosage: UNK, AT MIDDAY AND NIGHT
  3. BISOPROLOL FUMARATE. [Concomitant]
     Active Substance: BISOPROLOL FUMARATE
     Indication: CARDIAC DISORDER
     Dosage: 1 DOSAGE FORM, EACH MORNING
  4. ORFIDAL [Concomitant]
     Active Substance: LORAZEPAM
     Indication: SLEEP DISORDER
     Dosage: UNK, AT NIGHT

REACTIONS (8)
  - Extremity necrosis [Not Recovered/Not Resolved]
  - Fungal skin infection [Recovered/Resolved]
  - Cardiac murmur [Recovered/Resolved]
  - Limb injury [Recovered/Resolved]
  - Near drowning [Recovered/Resolved]
  - Dementia [Not Recovered/Not Resolved]
  - Skin fissures [Not Recovered/Not Resolved]
  - Pain in extremity [Unknown]

NARRATIVE: CASE EVENT DATE: 201910
